FAERS Safety Report 14744663 (Version 2)
Quarter: 2018Q4

REPORT INFORMATION
  Report Type: Report from Study
  Country: AT (occurrence: AT)
  Receive Date: 20180411
  Receipt Date: 20181215
  Transmission Date: 20190204
  Serious: Yes (Death, Life-Threatening, Other)
  Sender: FDA-Public Use
  Company Number: AT-ACCORD-065555

PATIENT
  Age: 69 Year
  Sex: Male
  Weight: 111 kg

DRUGS (3)
  1. PREDNISOLONE. [Concomitant]
     Active Substance: PREDNISOLONE
     Indication: IMMUNOSUPPRESSION
     Dosage: 5 (UNKNOWN UNIT), ONCE DAILY
     Dates: start: 20160729
  2. TACROLIMUS. [Suspect]
     Active Substance: TACROLIMUS
     Indication: PROPHYLAXIS AGAINST TRANSPLANT REJECTION
     Dosage: ALSO RECEIVED 12 MG ON 05-FEB-2016,?6 MG ON 04-OCT-2016, 4 MG 09-FEB-2017
     Route: 048
     Dates: start: 20170105
  3. LEFLUNOMIDE. [Concomitant]
     Active Substance: LEFLUNOMIDE
     Indication: IMMUNOSUPPRESSION
     Dosage: 20 (UNKNOWN UNIT), ONCE DAILY
     Dates: start: 20160401

REACTIONS (3)
  - Hepatocellular carcinoma [Not Recovered/Not Resolved]
  - Neuroendocrine carcinoma [Fatal]
  - Human polyomavirus infection [Not Recovered/Not Resolved]

NARRATIVE: CASE EVENT DATE: 20170105
